FAERS Safety Report 25413313 (Version 1)
Quarter: 2025Q2

REPORT INFORMATION
  Report Type: Spontaneous
  Country: CO (occurrence: CO)
  Receive Date: 20250609
  Receipt Date: 20250609
  Transmission Date: 20250716
  Serious: Yes (Hospitalization, Other)
  Sender: SANDOZ
  Company Number: CO-002147023-NVSC2024CO115871

PATIENT
  Age: 85 Year
  Sex: Male
  Weight: 82 kg

DRUGS (3)
  1. EXELON [Suspect]
     Active Substance: RIVASTIGMINE TARTRATE
     Indication: Dementia Alzheimer^s type
     Dosage: 18 MILLIGRAM (ONE PATCH A DAY), QD (EXTENDED RELEASE) (START DATE: 24-JAN-2023)
     Route: 062
  2. EXELON [Suspect]
     Active Substance: RIVASTIGMINE TARTRATE
     Route: 062
  3. QUETIAPINE [Concomitant]
     Active Substance: QUETIAPINE
     Indication: Dementia Alzheimer^s type
     Dosage: 25 MG, Q24H
     Route: 048

REACTIONS (7)
  - Cellulitis [Not Recovered/Not Resolved]
  - Hallucination [Recovered/Resolved]
  - Stubbornness [Recovered/Resolved]
  - Pyrexia [Unknown]
  - Anxiety [Recovered/Resolved]
  - Restlessness [Recovered/Resolved]
  - Aggression [Recovered/Resolved]

NARRATIVE: CASE EVENT DATE: 20240525
